FAERS Safety Report 6430345-5 (Version None)
Quarter: 2009Q4

REPORT INFORMATION
  Report Type: 
  Country: None (occurrence: None)
  Receive Date: 20091106
  Receipt Date: 20091026
  Transmission Date: 20100525
  Serious: Yes (Other)
  Sender: FDA-Public Use
  Company Number: US-PFIZER INC-2008002275

PATIENT
  Sex: Female

DRUGS (6)
  1. CHANTIX [Suspect]
     Dosage: UNK
     Dates: start: 20070101, end: 20080101
  2. LISINOPRIL [Concomitant]
     Indication: HYPERTENSION
     Dosage: 10 MG, 1X/DAY
     Dates: start: 20080101
  3. LASIX [Concomitant]
     Indication: HYPERTENSION
     Dosage: 20 MG, 1X/DAY
     Dates: start: 20080101
  4. POTASSIUM [Concomitant]
     Indication: MINERAL SUPPLEMENTATION
     Dosage: UNK
     Dates: start: 20080101
  5. CRESTOR [Concomitant]
     Indication: HYPERCHOLESTEROLAEMIA
     Dosage: UNK MG, UNK
     Dates: end: 20080101
  6. NORVASC [Concomitant]
     Indication: HYPERTENSION
     Dosage: UNK
     Dates: end: 20080101

REACTIONS (12)
  - BURSITIS [None]
  - DEPRESSION [None]
  - FALL [None]
  - GRAND MAL CONVULSION [None]
  - HAND FRACTURE [None]
  - MYALGIA [None]
  - OEDEMA PERIPHERAL [None]
  - PANIC ATTACK [None]
  - POLYARTHRITIS [None]
  - PSORIASIS [None]
  - WEIGHT INCREASED [None]
  - WRIST FRACTURE [None]
